FAERS Safety Report 13589721 (Version 1)
Quarter: 2017Q2

REPORT INFORMATION
  Report Type: Spontaneous
  Country: US (occurrence: US)
  Receive Date: 20170527
  Receipt Date: 20170527
  Transmission Date: 20170830
  Serious: Yes (Other)
  Sender: FDA-Public Use
  Company Number: None

PATIENT
  Age: 33 Year
  Sex: Female
  Weight: 90 kg

DRUGS (3)
  1. PENICILLIN [Concomitant]
     Active Substance: PENICILLIN
  2. KDS LAB LIQUID STYPTIC [Suspect]
     Active Substance: ALCOHOL\LIDOCAINE HYDROCHLORIDE\ZINC CHLORIDE
     Indication: HAEMORRHAGE
     Route: 061
     Dates: start: 20170526, end: 20170526
  3. PRILOSEC [Concomitant]
     Active Substance: OMEPRAZOLE MAGNESIUM

REACTIONS (3)
  - Contusion [None]
  - Hypersensitivity [None]
  - Vision blurred [None]

NARRATIVE: CASE EVENT DATE: 20170526
